FAERS Safety Report 9897423 (Version 1)
Quarter: 2014Q1

REPORT INFORMATION
  Report Type: Report from Study
  Country: US (occurrence: US)
  Receive Date: 20140214
  Receipt Date: 20140214
  Transmission Date: 20141002
  Serious: Yes (Death, Hospitalization)
  Sender: FDA-Public Use
  Company Number: US-ROCHE-1326960

PATIENT
  Age: 43 Year
  Sex: Female
  Weight: 66.28 kg

DRUGS (15)
  1. XELODA [Suspect]
     Indication: BREAST CANCER METASTATIC
     Route: 065
     Dates: start: 20100111, end: 201003
  2. XELODA [Suspect]
     Route: 065
     Dates: start: 20100625
  3. XELODA [Suspect]
     Route: 065
     Dates: start: 200904, end: 200907
  4. AVASTIN [Suspect]
     Indication: BREAST CANCER METASTATIC
     Route: 042
     Dates: start: 20110415
  5. HERCEPTIN [Suspect]
     Indication: BREAST CANCER METASTATIC
     Route: 065
     Dates: end: 200703
  6. HERCEPTIN [Suspect]
     Route: 065
     Dates: start: 200904, end: 200911
  7. HERCEPTIN [Suspect]
     Route: 065
     Dates: start: 20100111, end: 201003
  8. DEXAMETHASONE SODIUM PHOSPHATE [Concomitant]
     Indication: BREAST CANCER METASTATIC
     Route: 042
     Dates: start: 20110415
  9. NAVELBINE [Concomitant]
     Indication: BREAST CANCER METASTATIC
  10. ERIBULIN [Concomitant]
     Indication: BREAST CANCER METASTATIC
  11. GEMZAR [Concomitant]
     Indication: BREAST CANCER METASTATIC
  12. TAXOL [Concomitant]
     Indication: BREAST CANCER METASTATIC
  13. TYKERB [Concomitant]
     Indication: BREAST CANCER METASTATIC
  14. EPIRUBICIN [Concomitant]
  15. CYTOXAN [Concomitant]

REACTIONS (14)
  - Death [Fatal]
  - Ejection fraction decreased [Unknown]
  - Disease progression [Unknown]
  - Bacteraemia [Unknown]
  - Klebsiella infection [Unknown]
  - Abdominal pain upper [Unknown]
  - Asthenia [Unknown]
  - Haemorrhoids [Unknown]
  - Skin exfoliation [Unknown]
  - Mood swings [Unknown]
  - Depression [Unknown]
  - Suicidal ideation [Unknown]
  - Tinea pedis [Unknown]
  - Rash [Unknown]
